FAERS Safety Report 5508602-6 (Version None)
Quarter: 2007Q4

REPORT INFORMATION
  Report Type: 
  Country: None (occurrence: None)
  Receive Date: 20071105
  Receipt Date: 20071030
  Transmission Date: 20080405
  Serious: Yes (Other)
  Sender: FDA-Public Use
  Company Number: 2007SP020739

PATIENT
  Age: 50 Year
  Sex: Male

DRUGS (4)
  1. PEG-INTRON [Suspect]
     Indication: HEPATITIS C
     Dosage: 100 MCG; QW; SC
     Route: 058
     Dates: start: 20061114, end: 20070424
  2. REBETOL [Suspect]
     Indication: HEPATITIS C
     Dosage: 800 MG; QD;PO;  600 MG;QD; PO;  400 MG;QD;PO
     Route: 048
     Dates: start: 20061114, end: 20061211
  3. REBETOL [Suspect]
     Indication: HEPATITIS C
     Dosage: 800 MG; QD;PO;  600 MG;QD; PO;  400 MG;QD;PO
     Route: 048
     Dates: start: 20061212, end: 20061218
  4. REBETOL [Suspect]
     Indication: HEPATITIS C
     Dosage: 800 MG; QD;PO;  600 MG;QD; PO;  400 MG;QD;PO
     Route: 048
     Dates: start: 20061219, end: 20070424

REACTIONS (11)
  - ANAEMIA [None]
  - BLOOD CHOLESTEROL ABNORMAL [None]
  - BLOOD CHOLESTEROL INCREASED [None]
  - CANDIDIASIS [None]
  - FACE OEDEMA [None]
  - GAIT DISTURBANCE [None]
  - INSOMNIA [None]
  - LOW DENSITY LIPOPROTEIN INCREASED [None]
  - MALAISE [None]
  - MUSCULAR WEAKNESS [None]
  - OEDEMA PERIPHERAL [None]
